FAERS Safety Report 4918820-3 (Version None)
Quarter: 2006Q1

REPORT INFORMATION
  Report Type: 
  Country: None (occurrence: None)
  Receive Date: 20060222
  Receipt Date: 20060209
  Transmission Date: 20060701
  Serious: Yes (Hospitalization)
  Sender: FDA-Public Use
  Company Number: US-MERCK-0602USA02285

PATIENT
  Age: 79 Year
  Sex: Female

DRUGS (2)
  1. ZETIA [Suspect]
     Indication: HYPERLIPIDAEMIA
     Route: 048
  2. LIPITOR [Concomitant]
     Route: 048

REACTIONS (4)
  - CHEST PAIN [None]
  - PHARYNGOLARYNGEAL PAIN [None]
  - POLYMYALGIA RHEUMATICA [None]
  - TEMPORAL ARTERITIS [None]
